FAERS Safety Report 7866742-0 (Version None)
Quarter: 2011Q4

REPORT INFORMATION
  Report Type: 
  Country: None (occurrence: None)
  Receive Date: 20111028
  Receipt Date: 20110810
  Transmission Date: 20120403
  Serious: No
  Sender: FDA-Public Use
  Company Number: US-GLAXOSMITHKLINE-A0940366A

PATIENT
  Age: 67 Year
  Sex: Female

DRUGS (6)
  1. METHOTREXATE [Concomitant]
  2. SPIRIVA [Concomitant]
  3. ALBUTEROL [Concomitant]
     Route: 055
  4. DEXLANSOPRAZOLE [Concomitant]
  5. RESCUE REMEDY [Concomitant]
     Route: 055
  6. ADVAIR DISKUS 100/50 [Suspect]
     Indication: CHRONIC OBSTRUCTIVE PULMONARY DISEASE
     Dosage: 1PUFF TWICE PER DAY
     Route: 055
     Dates: start: 20050101

REACTIONS (4)
  - PRODUCT QUALITY ISSUE [None]
  - NASOPHARYNGITIS [None]
  - INCREASED UPPER AIRWAY SECRETION [None]
  - DYSPNOEA [None]
